FAERS Safety Report 12346332 (Version 2)
Quarter: 2016Q2

REPORT INFORMATION
  Report Type: Report from Study
  Country: DE (occurrence: DE)
  Receive Date: 20160509
  Receipt Date: 20160511
  Transmission Date: 20160815
  Serious: Yes (Death, Other)
  Sender: FDA-Public Use
  Company Number: DE-ROCHE-1752974

PATIENT

DRUGS (3)
  1. HEPARIN [Suspect]
     Active Substance: HEPARIN SODIUM
     Indication: THROMBOSIS IN DEVICE
     Route: 042
  2. ALTEPLASE [Suspect]
     Active Substance: ALTEPLASE
     Indication: THROMBOSIS IN DEVICE
     Route: 065
  3. PHENPROCOUMON [Suspect]
     Active Substance: PHENPROCOUMON
     Indication: THROMBOSIS IN DEVICE
     Route: 065

REACTIONS (6)
  - Thrombosis [Unknown]
  - Treatment failure [Unknown]
  - Pulmonary haemorrhage [Unknown]
  - Epistaxis [Unknown]
  - Cerebral haemorrhage [Fatal]
  - Renal failure [Unknown]
